FAERS Safety Report 19895421 (Version 2)
Quarter: 2023Q1

REPORT INFORMATION
  Report Type: Spontaneous
  Country: CH (occurrence: CH)
  Receive Date: 20210929
  Receipt Date: 20230124
  Transmission Date: 20230417
  Serious: Yes (Hospitalization)
  Sender: FDA-Public Use
  Company Number: None

PATIENT
  Age: 63 Year
  Sex: Male

DRUGS (7)
  1. ERBITUX [Suspect]
     Active Substance: CETUXIMAB
     Indication: Colon cancer metastatic
     Dosage: 400 MG/M2, UNKNOWN
     Route: 065
     Dates: start: 20210720
  2. ERBITUX [Suspect]
     Active Substance: CETUXIMAB
     Dosage: 250 MG/M2, UNKNOWN
     Route: 065
     Dates: start: 2021
  3. FLUOROURACIL [Suspect]
     Active Substance: FLUOROURACIL
     Indication: Colon cancer metastatic
     Dosage: 2000 MG/M2, UNKNOWN
     Route: 065
     Dates: start: 20210720, end: 202108
  4. FLUOROURACIL [Suspect]
     Active Substance: FLUOROURACIL
     Dosage: 1000 MG/M2, CYCLICAL
     Route: 042
     Dates: start: 20210818
  5. IRINOTECAN [Suspect]
     Active Substance: IRINOTECAN
     Indication: Colon cancer metastatic
     Dosage: 80 MG/M2, UNKNOWN
     Route: 065
     Dates: start: 20210720
  6. LEUCOVORIN [Concomitant]
     Active Substance: LEUCOVORIN
     Indication: Colon cancer metastatic
     Dosage: CYCLICAL
     Dates: start: 20210720, end: 202108
  7. LEUCOVORIN [Concomitant]
     Active Substance: LEUCOVORIN
     Indication: Colon cancer metastatic
     Dosage: UNK, CYCLICAL
     Dates: start: 20210720, end: 202108

REACTIONS (3)
  - Gastrointestinal disorder [Recovered/Resolved]
  - Renal failure [Recovered/Resolved]
  - Hyponatraemia [Recovered/Resolved]

NARRATIVE: CASE EVENT DATE: 20210806
